FAERS Safety Report 10159442 (Version 1)
Quarter: 2014Q2

REPORT INFORMATION
  Report Type: Spontaneous
  Country: US (occurrence: None)
  Receive Date: 20140506
  Receipt Date: 20140506
  Transmission Date: 20141212
  Serious: No
  Sender: FDA-Public Use
  Company Number: US-ALSI-201400055

PATIENT
  Age: 33 Year
  Sex: Female

DRUGS (4)
  1. HELIUM [Suspect]
     Indication: OBLITERATIVE BRONCHIOLITIS
     Dosage: 60% TOTAL RESPIRATORY
  2. OXYGEN [Suspect]
     Indication: OBLITERATIVE BRONCHIOLITIS
     Dosage: 40% TOTAL RESPIRATORY
  3. FUROSEMIDE [Concomitant]
  4. CARVEDILOL [Concomitant]

REACTIONS (7)
  - Dyspnoea [None]
  - Off label use [None]
  - Renal failure [None]
  - Respiratory disorder [None]
  - Cardiac failure congestive [None]
  - Ascites [None]
  - Hypervolaemia [None]
